FAERS Safety Report 9495977 (Version 2)
Quarter: 2013Q3

REPORT INFORMATION
  Report Type: Report from Study
  Country: US (occurrence: US)
  Receive Date: 20130904
  Receipt Date: 20130904
  Transmission Date: 20140515
  Serious: Yes (Other)
  Sender: FDA-Public Use
  Company Number: US-PFIZER INC-2013189877

PATIENT
  Age: 69 Year
  Sex: Female
  Weight: 77 kg

DRUGS (15)
  1. METHOTREXATE SODIUM [Suspect]
     Indication: RHEUMATOID ARTHRITIS
     Dosage: 2.5 MG, 6 TABLETS WEEKLY
     Dates: start: 201304
  2. IBUPROFEN [Suspect]
     Dosage: UNK
  3. LIPITOR [Suspect]
     Indication: BLOOD CHOLESTEROL INCREASED
     Dosage: 40 MG, ONCE DAILY
  4. HUMIRA [Suspect]
     Indication: RHEUMATOID ARTHRITIS
     Dosage: 40 MG, 1 IN 2 WK
     Dates: start: 20130104, end: 20130329
  5. FUROSEMIDE [Concomitant]
     Indication: FLUID IMBALANCE
     Dosage: UNK
  6. PREDNISONE [Concomitant]
     Indication: RHEUMATOID ARTHRITIS
     Dosage: 5 MG, UNK
  7. PREDNISONE [Concomitant]
     Dosage: 2.5 MG, 1 IN 1 D
  8. FOLIC ACID [Concomitant]
     Indication: VITAMIN SUPPLEMENTATION
     Dosage: 1 MG, 1 IN 1 D
  9. FOLIC ACID [Concomitant]
     Indication: LIVER DISORDER
  10. TRAMADOL HYDROCHLORIDE [Concomitant]
     Indication: RHEUMATOID ARTHRITIS
     Dosage: 50 MG (2-3 A DAY), AS NEEDED
  11. TRAMADOL HYDROCHLORIDE [Concomitant]
     Indication: PAIN
  12. ATENOLOL [Concomitant]
     Indication: HYPERTENSION
     Dosage: 100 MG, 1 IN 1 D
  13. OMEPRAZOLE [Concomitant]
     Indication: GASTROOESOPHAGEAL REFLUX DISEASE
     Dosage: 20 MG, 1 IN 1 D
  14. BABY ASPIRIN [Concomitant]
     Dosage: 81 MG, 1 IN 1 D
  15. KLOR-CON [Concomitant]
     Dosage: 20 MG, 1 IN 1 D

REACTIONS (9)
  - Rheumatoid arthritis [Unknown]
  - Hepatic enzyme increased [Unknown]
  - Injection site bruising [Unknown]
  - Blood pressure increased [Unknown]
  - Hot flush [Unknown]
  - Headache [Unknown]
  - Arthralgia [Unknown]
  - Back pain [Unknown]
  - Pain in extremity [Unknown]
